FAERS Safety Report 12574659 (Version 1)
Quarter: 2016Q3

REPORT INFORMATION
  Report Type: Spontaneous
  Country: DE (occurrence: DE)
  Receive Date: 20160720
  Receipt Date: 20160720
  Transmission Date: 20161109
  Serious: Yes (Other)
  Sender: FDA-Public Use
  Company Number: DE-PFIZER INC-2016343724

PATIENT
  Sex: Female

DRUGS (2)
  1. TAVOR (LORAZEPAM) [Suspect]
     Active Substance: LORAZEPAM
  2. LYRICA [Suspect]
     Active Substance: PREGABALIN

REACTIONS (2)
  - Condition aggravated [Unknown]
  - Dysphagia [Unknown]
